FAERS Safety Report 9814032 (Version 2)
Quarter: 2014Q2

REPORT INFORMATION
  Report Type: Spontaneous
  Country: JP (occurrence: JP)
  Receive Date: 20140113
  Receipt Date: 20140422
  Transmission Date: 20141212
  Serious: Yes (Other)
  Sender: FDA-Public Use
  Company Number: PHHY2014JP003068

PATIENT
  Age: 27 Year
  Sex: Female
  Weight: 71 kg

DRUGS (3)
  1. PACLITAXEL [Suspect]
     Indication: CHEMOTHERAPY
  2. DOCETAXEL [Suspect]
     Indication: CHEMOTHERAPY
  3. CARBOPLATIN [Suspect]
     Indication: CHEMOTHERAPY

REACTIONS (2)
  - Amenorrhoea [Not Recovered/Not Resolved]
  - Hypersensitivity [Unknown]
